FAERS Safety Report 6734936-3 (Version None)
Quarter: 2010Q2

REPORT INFORMATION
  Report Type: 
  Country: None (occurrence: None)
  Receive Date: 20100521
  Receipt Date: 20100510
  Transmission Date: 20101027
  Serious: Yes (Hospitalization, Other)
  Sender: FDA-Public Use
  Company Number: US-BAYER-201014470NA

PATIENT
  Age: 35 Year
  Sex: Female
  Weight: 57 kg

DRUGS (23)
  1. OCELLA [Suspect]
     Indication: CONTRACEPTION
     Route: 048
     Dates: start: 20060814
  2. OCELLA [Suspect]
     Dosage: 11-JAN-2009 TO 18-OCT-2009
     Route: 048
     Dates: start: 20090101, end: 20091018
  3. YAZ [Suspect]
     Indication: CONTRACEPTION
     Dosage: 14-AUG-2007 TO 18-NOV-2007
     Route: 048
     Dates: start: 20070801, end: 20071101
  4. YASMIN [Suspect]
     Indication: CONTRACEPTION
     Dosage: 08-FEB-2008 TO 01-JUN-2008
     Route: 048
     Dates: start: 20080201, end: 20080601
  5. MICROGESTIN 1.5/30 [Concomitant]
     Route: 065
     Dates: start: 20080701, end: 20081001
  6. MICROGESTIN 1.5/30 [Concomitant]
     Dates: start: 20091101
  7. SPRINTEC [Concomitant]
     Dosage: 23-SEP-2008 (MEDICAL RECORDS) AND OCT-2008 (PFS)
     Route: 065
     Dates: start: 20080101, end: 20081117
  8. LOESTRIN 1.5/30 [Concomitant]
     Route: 065
     Dates: start: 20081224
  9. VITAMIN C [Concomitant]
     Route: 065
  10. ALEVE (CAPLET) [Concomitant]
     Route: 065
  11. UNKNOWN DRUG [Concomitant]
     Indication: THYROID DISORDER
     Route: 065
     Dates: start: 20081001
  12. LEVOTHYROXINE SODIUM [Concomitant]
     Dosage: 09-OCT-2009
     Route: 065
  13. SERTRALINE HCL [Concomitant]
     Dosage: FILLED ON 09-OCT-2010 AND 28-JAN-2010
     Route: 065
  14. MICROGESTIN FE [Concomitant]
     Route: 065
     Dates: end: 20080920
  15. MICROGESTIN FE [Concomitant]
     Dosage: 1/20; 19-OCT-2009
     Route: 065
  16. TILIA FE [Concomitant]
     Dosage: 28; 13-DEC-2008
  17. PRENAPLUS [Concomitant]
     Dosage: 18-NOV-2009
     Route: 065
  18. IBUPROFEN [Concomitant]
     Dosage: 12-DEC-2008
     Route: 065
  19. AZITHROMYCIN [Concomitant]
     Dosage: 22-AUG-2007
     Route: 065
  20. FLUTICOSONE [Concomitant]
     Route: 045
     Dates: start: 20070822, end: 20080803
  21. CLONAZEPAM [Concomitant]
     Dosage: 12-FEB-2008
     Route: 065
  22. CLINDAMYCIN [Concomitant]
     Dosage: 24-MAR-2008
     Route: 065
  23. ERRIN [Concomitant]
     Dosage: BRR ON 18-NOV-2008
     Route: 065

REACTIONS (15)
  - ABDOMINAL DISTENSION [None]
  - ABDOMINAL PAIN UPPER [None]
  - ANXIETY [None]
  - BILIARY DYSKINESIA [None]
  - BURNING SENSATION [None]
  - CHEST PAIN [None]
  - CHOLECYSTITIS [None]
  - CHOLECYSTITIS CHRONIC [None]
  - CHOLESTASIS [None]
  - CHOLESTEROSIS [None]
  - CONSTIPATION [None]
  - DYSPNOEA [None]
  - FLUSHING [None]
  - PALPITATIONS [None]
  - PANIC ATTACK [None]
